FAERS Safety Report 4673478-6 (Version None)
Quarter: 2005Q2

REPORT INFORMATION
  Report Type: 
  Country: None (occurrence: None)
  Receive Date: 20050525
  Receipt Date: 20050311
  Transmission Date: 20051028
  Serious: No
  Sender: FDA-Public Use
  Company Number: US-GLAXOSMITHKLINE-A0549396A

PATIENT
  Age: 48 Year
  Sex: Male
  Weight: 84.1 kg

DRUGS (9)
  1. EPZICOM [Suspect]
     Indication: HIV INFECTION
     Dosage: 1TAB PER DAY
     Route: 048
     Dates: start: 20050118, end: 20050311
  2. ZERIT [Concomitant]
  3. VIRAMUNE [Concomitant]
  4. METHADONE HCL [Concomitant]
  5. PERCOCET [Concomitant]
  6. XANAX [Concomitant]
  7. VIAGRA [Concomitant]
  8. BACTRIM [Concomitant]
  9. SPIRONOLACTONE [Concomitant]

REACTIONS (9)
  - ASTHENIA [None]
  - COUGH [None]
  - DECREASED APPETITE [None]
  - DIZZINESS [None]
  - DYSPNOEA [None]
  - FEELING HOT [None]
  - MYALGIA [None]
  - NASAL CONGESTION [None]
  - OEDEMA PERIPHERAL [None]
